FAERS Safety Report 8478167-8 (Version None)
Quarter: 2012Q2

REPORT INFORMATION
  Report Type: 
  Country: None (occurrence: None)
  Receive Date: 20120629
  Receipt Date: 20120622
  Transmission Date: 20120825
  Serious: Yes (Other)
  Sender: FDA-Public Use
  Company Number: PHHY2012PT050321

PATIENT
  Age: 36 Year
  Sex: Female

DRUGS (1)
  1. EXTAVIA [Suspect]
     Indication: MULTIPLE SCLEROSIS
     Dosage: UNK UKN, QOD
     Route: 058
     Dates: start: 20120605

REACTIONS (7)
  - LOSS OF CONSCIOUSNESS [None]
  - DIZZINESS [None]
  - INFLUENZA [None]
  - ASTHENIA [None]
  - CHILLS [None]
  - HYPOAESTHESIA [None]
  - PAIN [None]
